FAERS Safety Report 18318378 (Version 1)
Quarter: 2020Q3

REPORT INFORMATION
  Report Type: Spontaneous
  Country: DE (occurrence: DE)
  Receive Date: 20200928
  Receipt Date: 20200928
  Transmission Date: 20201103
  Serious: Yes (Hospitalization)
  Sender: FDA-Public Use
  Company Number: DE-TEVA-2020-DE-1831790

PATIENT
  Age: 94 Year
  Sex: Male
  Weight: 60 kg

DRUGS (10)
  1. ACETYLSALICYLSAURE [Concomitant]
     Active Substance: ASPIRIN
     Dosage: 100 MILLIGRAM DAILY; 1?0?0?0
     Route: 048
  2. ESCITALOPRAM [Suspect]
     Active Substance: ESCITALOPRAM OXALATE
     Dosage: 10 MILLIGRAM DAILY; 1?0?0?0
     Route: 048
  3. MELPERON [Suspect]
     Active Substance: MELPERONE
     Dosage: 50 MILLIGRAM DAILY;  0?0?0?1
     Route: 048
  4. LORAZEPAM. [Suspect]
     Active Substance: LORAZEPAM
     Dosage: .5 MILLIGRAM DAILY; 1?0?0?0
     Route: 048
  5. PANTOPRAZOL [Concomitant]
     Active Substance: PANTOPRAZOLE SODIUM
     Dosage: 20 MILLIGRAM DAILY;  0?0?1?0
     Route: 048
  6. DONEPEZIL. [Suspect]
     Active Substance: DONEPEZIL
     Dosage: 10 MILLIGRAM DAILY; 0?0?1?0
     Route: 048
  7. EUPHRASIA [Concomitant]
     Dosage: NA D3, REQUIREMENT, EYE DROPS
     Route: 047
  8. PREDNISOLON/ESTRADIOL [Concomitant]
     Dosage: 4 | 0.05 MG / G, SCHEME
     Route: 003
  9. METAMIZOL [Concomitant]
     Active Substance: METAMIZOLE SODIUM
     Dosage: 500 MG, AS NEEDED
     Route: 048
  10. LACTULOSE. [Concomitant]
     Active Substance: LACTULOSE
     Dosage: 13.4 GRAM DAILY; 1?0?0?0, JUICE
     Route: 048

REACTIONS (3)
  - Fall [Unknown]
  - Diarrhoea [Unknown]
  - Vomiting [Unknown]

NARRATIVE: CASE EVENT DATE: 201909
